FAERS Safety Report 7031390-1 (Version None)
Quarter: 2010Q4

REPORT INFORMATION
  Report Type: 
  Country: None (occurrence: None)
  Receive Date: 20101006
  Receipt Date: 20100927
  Transmission Date: 20110411
  Serious: Yes (Other)
  Sender: FDA-Public Use
  Company Number: US-BAXTER-2010BH021702

PATIENT
  Age: 60 Year
  Sex: Female

DRUGS (17)
  1. GAMMAGARD LIQUID [Suspect]
     Indication: HYPOGAMMAGLOBULINAEMIA
     Route: 042
     Dates: start: 20100810, end: 20100810
  2. GAMMAGARD LIQUID [Suspect]
     Route: 042
     Dates: start: 20080101
  3. TESSALON [Concomitant]
  4. ZANTAC [Concomitant]
  5. ANTI-DIABETICS [Concomitant]
     Indication: TYPE 2 DIABETES MELLITUS
     Route: 048
     Dates: start: 20070101
  6. LOMOTIL [Concomitant]
  7. NEURONTIN [Concomitant]
  8. ADVAIR DISKUS 100/50 [Concomitant]
  9. NEXIUM [Concomitant]
  10. ESTER-C [Concomitant]
  11. ZETIA [Concomitant]
     Indication: TYPE 2 DIABETES MELLITUS
     Route: 048
     Dates: start: 20070101
  12. FISH OIL [Concomitant]
  13. PROMETHAZINE [Concomitant]
  14. ASPIRIN [Concomitant]
  15. FLAXSEED OIL [Concomitant]
  16. TYLENOL [Concomitant]
     Indication: PREMEDICATION
     Route: 048
     Dates: start: 20100810
  17. DIPHENHYDRAMINE [Concomitant]
     Indication: PREMEDICATION
     Route: 048
     Dates: start: 20100810

REACTIONS (7)
  - BLOOD PRESSURE INCREASED [None]
  - BURNING SENSATION [None]
  - FEELING DRUNK [None]
  - HYPOAESTHESIA [None]
  - LIP SWELLING [None]
  - PAIN [None]
  - SWELLING FACE [None]
